FAERS Safety Report 25751436 (Version 1)
Quarter: 2025Q3

REPORT INFORMATION
  Report Type: Spontaneous
  Country: EU (occurrence: EU)
  Receive Date: 20250902
  Receipt Date: 20250902
  Transmission Date: 20251021
  Serious: Yes (Other)
  Sender: AMNEAL
  Company Number: EU-AMNEAL PHARMACEUTICALS-2025-AMRX-03312

PATIENT
  Age: 72 Year

DRUGS (1)
  1. ROPIVACAINE HYDROCHLORIDE [Suspect]
     Active Substance: ROPIVACAINE HYDROCHLORIDE
     Indication: Nerve block
     Route: 053

REACTIONS (1)
  - Enterocolitis [Unknown]
